FAERS Safety Report 14241893 (Version 2)
Quarter: 2017Q4

REPORT INFORMATION
  Report Type: Spontaneous
  Country: CA (occurrence: CA)
  Receive Date: 20171201
  Receipt Date: 20171214
  Transmission Date: 20180321
  Serious: Yes (Other)
  Sender: FDA-Public Use
  Company Number: CA-CONCORDIA PHARMACEUTICALS INC.-GSH201711-006534

PATIENT
  Sex: Female

DRUGS (12)
  1. PLAQUENIL [Suspect]
     Active Substance: HYDROXYCHLOROQUINE SULFATE
     Indication: PRODUCT USED FOR UNKNOWN INDICATION
     Route: 048
  2. HUMIRA [Suspect]
     Active Substance: ADALIMUMAB
     Indication: PRODUCT USED FOR UNKNOWN INDICATION
     Route: 058
  3. ENBREL [Suspect]
     Active Substance: ETANERCEPT
     Indication: ANKYLOSING SPONDYLITIS
     Route: 065
  4. HYDROXYCHLOROQUINE [Suspect]
     Active Substance: HYDROXYCHLOROQUINE
     Indication: PRODUCT USED FOR UNKNOWN INDICATION
     Route: 048
  5. AMITRIPTYLINE [Suspect]
     Active Substance: AMITRIPTYLINE
     Indication: RHEUMATOID ARTHRITIS
     Route: 065
  6. MELOXICAM. [Suspect]
     Active Substance: MELOXICAM
     Indication: RHEUMATOID ARTHRITIS
     Route: 065
  7. SULPHASALAZINE [Suspect]
     Active Substance: SULFASALAZINE
     Indication: RHEUMATOID ARTHRITIS
     Route: 065
  8. FOLIC ACID. [Concomitant]
     Active Substance: FOLIC ACID
  9. METHOTREXATE. [Concomitant]
     Active Substance: METHOTREXATE
  10. SULPHASALAZINE [Concomitant]
     Active Substance: SULFASALAZINE
  11. NAPROXEN. [Concomitant]
     Active Substance: NAPROXEN
  12. PANTOPRAZOLE [Concomitant]
     Active Substance: PANTOPRAZOLE

REACTIONS (15)
  - Immunodeficiency [Recovering/Resolving]
  - Somnolence [Recovering/Resolving]
  - Drug effect incomplete [Unknown]
  - Drug ineffective [Unknown]
  - Kyphoscoliosis [Recovering/Resolving]
  - Spinal osteoarthritis [Recovering/Resolving]
  - HLA marker study positive [Recovering/Resolving]
  - Plantar fasciitis [Recovering/Resolving]
  - Musculoskeletal stiffness [Recovering/Resolving]
  - Myofascial pain syndrome [Recovering/Resolving]
  - Fibromyalgia [Recovering/Resolving]
  - Musculoskeletal discomfort [Recovering/Resolving]
  - Arthritis [Recovering/Resolving]
  - Chest pain [Recovering/Resolving]
  - Ankylosing spondylitis [Recovering/Resolving]
